FAERS Safety Report 20833354 (Version 1)
Quarter: 2022Q2

REPORT INFORMATION
  Report Type: Report from Study
  Country: US (occurrence: US)
  Receive Date: 20220516
  Receipt Date: 20220516
  Transmission Date: 20220721
  Serious: Yes (Other)
  Sender: FDA-Public Use
  Company Number: US-KOREA IPSEN Pharma-2022-00185

PATIENT
  Age: 86 Year
  Sex: Male

DRUGS (2)
  1. SOMATULINE DEPOT [Suspect]
     Active Substance: LANREOTIDE ACETATE
     Indication: Neuroendocrine tumour
     Dosage: 120 MG/0.5 ML
     Route: 058
     Dates: start: 202007
  2. SOMATULINE DEPOT [Suspect]
     Active Substance: LANREOTIDE ACETATE
     Indication: Carcinoid tumour of the small bowel

REACTIONS (11)
  - Loss of consciousness [Recovered/Resolved]
  - Cardiomyopathy [Unknown]
  - Pericardial effusion [Unknown]
  - Oedema peripheral [Unknown]
  - Weight decreased [Unknown]
  - Loss of consciousness [Recovering/Resolving]
  - Fall [Recovering/Resolving]
  - Rib fracture [Recovering/Resolving]
  - Blood glucose increased [Recovering/Resolving]
  - Diarrhoea [Recovering/Resolving]
  - Off label use [Unknown]

NARRATIVE: CASE EVENT DATE: 20220301
